FAERS Safety Report 18221815 (Version 2)
Quarter: 2022Q1

REPORT INFORMATION
  Report Type: Spontaneous
  Country: US (occurrence: US)
  Receive Date: 20200902
  Receipt Date: 20220129
  Transmission Date: 20220423
  Serious: Yes (Other)
  Sender: FDA-Public Use
  Company Number: US-SAARTEMIS-SAC202008310242

PATIENT
  Age: 55 Year
  Sex: Male

DRUGS (1)
  1. ZANTAC [Suspect]
     Active Substance: RANITIDINE HYDROCHLORIDE
     Indication: Dyspepsia
     Dosage: 150 MG, QD
     Dates: start: 201602, end: 201702

REACTIONS (3)
  - Colorectal cancer [Unknown]
  - Gastrointestinal carcinoma [Unknown]
  - Small intestine carcinoma [Unknown]

NARRATIVE: CASE EVENT DATE: 20181101
